FAERS Safety Report 25552423 (Version 1)
Quarter: 2025Q3

REPORT INFORMATION
  Report Type: Spontaneous
  Country: EU (occurrence: EU)
  Receive Date: 20250715
  Receipt Date: 20250715
  Transmission Date: 20251020
  Serious: Yes (Life-Threatening, Hospitalization)
  Sender: SANDOZ
  Company Number: EU-STADA-01412424

PATIENT
  Age: 68 Year
  Sex: Male

DRUGS (8)
  1. TACROLIMUS [Suspect]
     Active Substance: TACROLIMUS
     Indication: Immunosuppressant drug therapy
     Route: 065
  2. TACROLIMUS [Suspect]
     Active Substance: TACROLIMUS
     Route: 065
  3. VORICONAZOLE [Suspect]
     Active Substance: VORICONAZOLE
     Indication: Phaeohyphomycosis
     Route: 048
     Dates: start: 2022, end: 2022
  4. VORICONAZOLE [Suspect]
     Active Substance: VORICONAZOLE
     Indication: Phaeohyphomycosis
     Route: 042
     Dates: start: 202205
  5. ITRACONAZOLE [Concomitant]
     Active Substance: ITRACONAZOLE
     Indication: Phaeohyphomycosis
     Dosage: 200 MG, QD
     Route: 065
     Dates: start: 202204
  6. POSACONAZOLE [Concomitant]
     Active Substance: POSACONAZOLE
     Indication: Phaeohyphomycosis
     Route: 048
     Dates: start: 202209
  7. PREDNISONE [Concomitant]
     Active Substance: PREDNISONE
     Indication: Immunosuppressant drug therapy
     Dosage: 10 MG, QD
     Route: 065
     Dates: start: 202204
  8. TERBINAFINE [Concomitant]
     Active Substance: TERBINAFINE
     Indication: Phaeohyphomycosis
     Dosage: 500 MG, QD
     Route: 065

REACTIONS (3)
  - Drug interaction [Unknown]
  - Drug ineffective [Unknown]
  - Therapeutic product effect decreased [Unknown]

NARRATIVE: CASE EVENT DATE: 20220101
